FAERS Safety Report 7114451-8 (Version None)
Quarter: 2010Q4

REPORT INFORMATION
  Report Type: 
  Country: None (occurrence: None)
  Receive Date: 20101119
  Receipt Date: 20101105
  Transmission Date: 20110411
  Serious: No
  Sender: FDA-Public Use
  Company Number: US-ELI_LILLY_AND_COMPANY-US201009005417

PATIENT
  Age: 46 Year
  Sex: Female

DRUGS (7)
  1. ZYPREXA [Suspect]
     Indication: SCHIZOPHRENIA
     Dosage: 30 MG, DAILY (1/D)
  2. ZYPREXA [Suspect]
     Dosage: 10 MG, DAILY (1/D)
  3. ZYPREXA [Suspect]
     Dosage: 5 MG, DAILY (1/D)
     Dates: start: 20060901, end: 20061101
  4. ZYPREXA [Suspect]
     Dosage: 30 MG, DAILY (1/D)
     Dates: start: 20070301
  5. ZYPREXA [Suspect]
     Dosage: 5 MG, DAILY (1/D)
  6. ZYPREXA [Suspect]
     Dosage: 5 MG, DAILY (1/D)
  7. MULTI-VITAMIN [Concomitant]

REACTIONS (4)
  - NASOPHARYNGITIS [None]
  - OROPHARYNGEAL PAIN [None]
  - OVERDOSE [None]
  - VISUAL ACUITY REDUCED [None]
